FAERS Safety Report 22350482 (Version 1)
Quarter: 2023Q2

REPORT INFORMATION
  Report Type: Spontaneous
  Country: IT (occurrence: IT)
  Receive Date: 20230522
  Receipt Date: 20230522
  Transmission Date: 20230722
  Serious: Yes (Other)
  Sender: FDA-Public Use
  Company Number: IT-ADVANZ PHARMA-202305003681

PATIENT

DRUGS (1)
  1. ZONISAMIDE [Suspect]
     Active Substance: ZONISAMIDE
     Indication: Epilepsy
     Dosage: 500 MG, QD, (ZONEGRAN, 5 X 100 MG PER DAY)
     Dates: start: 2000

REACTIONS (2)
  - Glaucoma [Unknown]
  - Visual field defect [Unknown]
